FAERS Safety Report 7946827-0 (Version None)
Quarter: 2011Q4

REPORT INFORMATION
  Report Type: 
  Country: None (occurrence: None)
  Receive Date: 20111123
  Receipt Date: 20111114
  Transmission Date: 20120403
  Serious: Yes (Death)
  Sender: FDA-Public Use
  Company Number: DSA_47947_2011

PATIENT
  Age: 81 Year
  Sex: Female

DRUGS (5)
  1. ENALAPRIL MALEATE [Suspect]
     Indication: HYPERTENSION
     Dosage: (5 MG, DAILY ORAL)
     Route: 048
     Dates: start: 20110224, end: 20110228
  2. LASIX [Suspect]
     Indication: HYPERTENSION
     Dosage: (40 MG QD ORAL)
     Route: 048
     Dates: start: 20110201, end: 20110316
  3. ALLOPURINOL [Suspect]
     Indication: GOUT
     Dosage: (100 MG QD ORAL)
     Route: 048
     Dates: start: 20110212, end: 20110316
  4. SYMMETREL [Suspect]
     Indication: PARKINSON'S DISEASE
     Dosage: (50 MG BID ORAL)
     Route: 048
     Dates: start: 20110201, end: 20110311
  5. NEODOPASOL (NEODOPASOL - LEVODOPA - BENSERAZIDE HYDROCHLORIDE) (NOT SP [Suspect]
     Indication: PARKINSON'S DISEASE
     Dosage: (0.5 TABLET 3 TIMES A DAY ORAL)
     Route: 048
     Dates: start: 20110306, end: 20110316

REACTIONS (3)
  - TOXIC EPIDERMAL NECROLYSIS [None]
  - SEPSIS [None]
  - IMPETIGO [None]
